FAERS Safety Report 16710535 (Version 6)
Quarter: 2019Q3

REPORT INFORMATION
  Report Type: Report from Study
  Country: FR (occurrence: FR)
  Receive Date: 20190816
  Receipt Date: 20190924
  Transmission Date: 20191004
  Serious: Yes (Hospitalization)
  Sender: FDA-Public Use
  Company Number: FR-EISAI MEDICAL RESEARCH-EC-2019-060778

PATIENT
  Age: 74 Year
  Sex: Female
  Weight: 45 kg

DRUGS (13)
  1. PEMBROLIZUMAB. [Suspect]
     Active Substance: PEMBROLIZUMAB
     Route: 041
     Dates: start: 20190725, end: 20190725
  2. SALAZOPYRIN [Concomitant]
     Active Substance: SULFASALAZINE
     Dates: start: 199912
  3. OXYGEN. [Concomitant]
     Active Substance: OXYGEN
     Dates: start: 20190808
  4. PEMBROLIZUMAB. [Suspect]
     Active Substance: PEMBROLIZUMAB
     Indication: ENDOMETRIAL CANCER
     Route: 041
     Dates: start: 20190704, end: 20190704
  5. OXYNORM [Concomitant]
     Active Substance: OXYCODONE HYDROCHLORIDE
     Dates: start: 20190626, end: 20190812
  6. MOVENTIG [Concomitant]
     Active Substance: NALOXEGOL OXALATE
     Dates: start: 20190626, end: 20190813
  7. LENVATINIB [Suspect]
     Active Substance: LENVATINIB
     Indication: ENDOMETRIAL CANCER
     Route: 048
     Dates: start: 20190704, end: 20190813
  8. FORLAX [Concomitant]
     Active Substance: POLYETHYLENE GLYCOL 4000
     Dates: start: 201907
  9. MICARDIS [Concomitant]
     Active Substance: TELMISARTAN
     Dates: start: 201212
  10. ACETAMINOPHEN. [Concomitant]
     Active Substance: ACETAMINOPHEN
     Dates: start: 20190626
  11. OXYCONTIN [Concomitant]
     Active Substance: OXYCODONE HYDROCHLORIDE
     Dates: start: 20190626, end: 20190813
  12. PAROXETINE. [Concomitant]
     Active Substance: PAROXETINE
     Dates: start: 20190805
  13. LERCAN [Concomitant]
     Active Substance: LERCANIDIPINE
     Dates: start: 201212

REACTIONS (1)
  - Hypothyroidism [Recovered/Resolved]

NARRATIVE: CASE EVENT DATE: 20190813
